FAERS Safety Report 6704449-3 (Version None)
Quarter: 2010Q2

REPORT INFORMATION
  Report Type: 
  Country: None (occurrence: None)
  Receive Date: 20100430
  Receipt Date: 20100420
  Transmission Date: 20101027
  Serious: Yes (Hospitalization)
  Sender: FDA-Public Use
  Company Number: ZA-JNJFOC-20100406034

PATIENT
  Sex: Female
  Weight: 67 kg

DRUGS (3)
  1. REVELLEX [Suspect]
     Indication: RHEUMATOID ARTHRITIS
     Route: 042
  2. REVELLEX [Suspect]
     Dosage: LOW-DOSE MAINTENANCE
     Route: 042
  3. METHOTREXATE [Suspect]
     Indication: DRUG USE FOR UNKNOWN INDICATION

REACTIONS (1)
  - MYCOBACTERIUM AVIUM COMPLEX INFECTION [None]
